FAERS Safety Report 8875710 (Version 2)
Quarter: 2015Q3

REPORT INFORMATION
  Report Type: Report from Study
  Country: US (occurrence: US)
  Receive Date: 20121023
  Receipt Date: 20150909
  Transmission Date: 20151125
  Serious: Yes (Other)
  Sender: FDA-Public Use
  Company Number: US-ROCHE-1134219

PATIENT
  Sex: Male

DRUGS (8)
  1. PSORCON [Concomitant]
     Active Substance: DIFLORASONE DIACETATE
  2. RAPTIVA [Suspect]
     Active Substance: EFALIZUMAB
     Indication: PUSTULAR PSORIASIS
     Route: 065
  3. CARDIZEM [Concomitant]
     Active Substance: DILTIAZEM HYDROCHLORIDE
  4. RAPTIVA [Suspect]
     Active Substance: EFALIZUMAB
     Indication: PSORIASIS
     Route: 065
  5. DOVONEX [Concomitant]
     Active Substance: CALCIPOTRIENE
  6. LIPITOR [Concomitant]
     Active Substance: ATORVASTATIN CALCIUM
  7. CLOBETASOL [Concomitant]
     Active Substance: CLOBETASOL
  8. HYZAAR [Concomitant]
     Active Substance: HYDROCHLOROTHIAZIDE\LOSARTAN POTASSIUM

REACTIONS (5)
  - Skin irritation [Unknown]
  - Pruritus [Unknown]
  - Haemorrhage [Unknown]
  - Skin exfoliation [Unknown]
  - Pain [Unknown]
